FAERS Safety Report 10100719 (Version 3)
Quarter: 2014Q2

REPORT INFORMATION
  Report Type: Spontaneous
  Country: IT (occurrence: IT)
  Receive Date: 20140423
  Receipt Date: 20140607
  Transmission Date: 20141212
  Serious: Yes (Other)
  Sender: FDA-Public Use
  Company Number: PHHY2014IT047475

PATIENT
  Age: 68 Year
  Sex: Female

DRUGS (9)
  1. GLYCERYL TRINITRATE [Suspect]
     Indication: MYOCARDIAL ISCHAEMIA
     Dosage: 1 DF (POS UNIT), DAILY
     Route: 062
     Dates: start: 20131126, end: 20131226
  2. METFORMIN [Concomitant]
     Dosage: UNK UKN, UNK
     Route: 048
  3. LANSOPRAZOLE [Concomitant]
     Dosage: UNK UKN, UNK
     Route: 048
  4. RAMIPRIL [Concomitant]
     Dosage: UNK UKN, UNK
     Route: 048
  5. ATORVASTATIN [Concomitant]
     Dosage: UNK UKN, UNK
     Route: 048
  6. ALLOPURINOL [Concomitant]
     Dosage: UNK UKN, UNK
     Route: 048
  7. CARDIOASPIRIN [Concomitant]
     Dosage: UNK
     Route: 048
  8. SELOKEN [Concomitant]
     Dosage: UNK
     Route: 048
  9. L-THYROXIN [Concomitant]
     Dosage: UNK UKN, UNK
     Route: 048

REACTIONS (3)
  - Dermatitis bullous [Recovering/Resolving]
  - Urticaria [Recovering/Resolving]
  - Pruritus [Recovering/Resolving]
